FAERS Safety Report 11967353 (Version 1)
Quarter: 2016Q1

REPORT INFORMATION
  Report Type: Spontaneous
  Country: US (occurrence: US)
  Receive Date: 20160127
  Receipt Date: 20160127
  Transmission Date: 20160526
  Serious: Yes (Other)
  Sender: FDA-Public Use
  Company Number: US-ELI_LILLY_AND_COMPANY-US201601006946

PATIENT
  Age: 54 Year
  Sex: Female

DRUGS (2)
  1. FORTEO [Suspect]
     Active Substance: TERIPARATIDE
     Indication: OSTEOPOROSIS
     Dosage: UNK UNK, QD
     Dates: start: 20091016, end: 20101116
  2. CALCIUM [Concomitant]
     Active Substance: CALCIUM

REACTIONS (13)
  - Loss of consciousness [Unknown]
  - Pyrexia [Recovered/Resolved]
  - Hypoaesthesia [Recovering/Resolving]
  - Fall [Recovering/Resolving]
  - Intervertebral disc protrusion [Unknown]
  - Bone pain [Not Recovered/Not Resolved]
  - Facial bones fracture [Unknown]
  - Pain in extremity [Not Recovered/Not Resolved]
  - Feeling hot [Recovered/Resolved]
  - Fall [Unknown]
  - Fall [Recovered/Resolved]
  - Ankle fracture [Recovered/Resolved]
  - Nausea [Recovered/Resolved]

NARRATIVE: CASE EVENT DATE: 20091016
